APPROVED DRUG PRODUCT: MAGNESIUM SULFATE IN PLASTIC CONTAINER
Active Ingredient: MAGNESIUM SULFATE
Strength: 2GM/50ML (40MG/ML)
Dosage Form/Route: INJECTABLE;INJECTION
Application: A213917 | Product #001 | TE Code: AP
Applicant: GLAND PHARMA LTD
Approved: Jul 10, 2020 | RLD: No | RS: No | Type: RX